FAERS Safety Report 17514758 (Version 1)
Quarter: 2020Q1

REPORT INFORMATION
  Report Type: Spontaneous
  Country: US (occurrence: US)
  Receive Date: 20200226
  Receipt Date: 20200226
  Transmission Date: 20200409
  Serious: Yes (Hospitalization)
  Sender: FDA-Public Use
  Company Number: None

PATIENT
  Age: 86 Year
  Sex: Male
  Weight: 75 kg

DRUGS (1)
  1. APIXABAN (APIXABAN 5MG TAB) [Suspect]
     Active Substance: APIXABAN
     Indication: ATRIAL FIBRILLATION
     Route: 048
     Dates: start: 20191105, end: 20191207

REACTIONS (8)
  - Sleep disorder [None]
  - Drug eruption [None]
  - Therapy cessation [None]
  - Blister [None]
  - Pruritus [None]
  - Rash maculo-papular [None]
  - Dermatitis [None]
  - Urticaria [None]

NARRATIVE: CASE EVENT DATE: 20191207
